FAERS Safety Report 12767723 (Version 1)
Quarter: 2016Q3

REPORT INFORMATION
  Report Type: Spontaneous
  Country: US (occurrence: US)
  Receive Date: 20160921
  Receipt Date: 20160921
  Transmission Date: 20161109
  Serious: Yes (Death)
  Sender: FDA-Public Use
  Company Number: US-SA-2016SA173497

PATIENT
  Age: 68 Year
  Sex: Male

DRUGS (1)
  1. RENVELA [Suspect]
     Active Substance: SEVELAMER CARBONATE
     Dosage: 3 PACKETS DAILY
     Route: 048
     Dates: start: 20160822

REACTIONS (1)
  - Death [Fatal]

NARRATIVE: CASE EVENT DATE: 20160823
